FAERS Safety Report 4565207-1 (Version None)
Quarter: 2005Q1

REPORT INFORMATION
  Report Type: 
  Country: None (occurrence: None)
  Receive Date: 20050127
  Receipt Date: 20050127
  Transmission Date: 20050727
  Serious: No
  Sender: FDA-Public Use
  Company Number: None

PATIENT
  Age: 70 Year
  Sex: Male
  Weight: 87.5 kg

DRUGS (4)
  1. FINASTERIDE [Suspect]
     Indication: BENIGN PROSTATIC HYPERPLASIA
     Dosage: 5MG, 5MG QD, ORAL
     Route: 048
  2. TRAZODONE HCL [Concomitant]
  3. GOSERLIN [Concomitant]
  4. TERAZOSIN HCL [Concomitant]

REACTIONS (2)
  - RASH [None]
  - SWELLING FACE [None]
